FAERS Safety Report 18691978 (Version 2)
Quarter: 2021Q1

REPORT INFORMATION
  Report Type: Spontaneous
  Country: ES (occurrence: ES)
  Receive Date: 20210102
  Receipt Date: 20210209
  Transmission Date: 20210419
  Serious: Yes (Other)
  Sender: FDA-Public Use
  Company Number: ES-AUROBINDO-AUR-APL-2021-000059

PATIENT
  Age: 87 Year
  Sex: Male

DRUGS (3)
  1. TRAMADOL+PARACETAMOL [Suspect]
     Active Substance: ACETAMINOPHEN\TRAMADOL
     Indication: PRODUCT USED FOR UNKNOWN INDICATION
     Dosage: UNK
     Route: 065
  2. AMIODARONE 200MG [Suspect]
     Active Substance: AMIODARONE
     Indication: PRODUCT USED FOR UNKNOWN INDICATION
     Dosage: BREAK FROM THE TREATMENT WITH AMIODARONE 200 MG ON WEEKENDS INSTEAD OF THURSDAY AND SUNDAY
     Route: 065
  3. RANITIDINE 150 MG FILM COATED TABLETS EFG [Suspect]
     Active Substance: RANITIDINE
     Indication: PRODUCT USED FOR UNKNOWN INDICATION
     Dosage: HE TAKES A SECOND TABLET OF RANITIDINE 150 MG AT NIGHT
     Route: 048

REACTIONS (4)
  - Self-medication [Unknown]
  - Glomerular filtration rate abnormal [Unknown]
  - Condition aggravated [Unknown]
  - Blood creatinine increased [Unknown]
